FAERS Safety Report 14346552 (Version 4)
Quarter: 2018Q4

REPORT INFORMATION
  Report Type: Report from Study
  Country: TW (occurrence: TW)
  Receive Date: 20180103
  Receipt Date: 20181029
  Transmission Date: 20190204
  Serious: Yes (Hospitalization)
  Sender: FDA-Public Use
  Company Number: TW-ASTRAZENECA-2017SF33449

PATIENT
  Age: 24426 Day
  Sex: Male

DRUGS (26)
  1. PEMETREXED. [Suspect]
     Active Substance: PEMETREXED
     Indication: NON-SMALL CELL LUNG CANCER
     Dosage: 500.0MG/M2 ONCE/SINGLE ADMINISTRATION
     Route: 042
     Dates: start: 20171017, end: 20171017
  2. CARBOPLATIN. [Suspect]
     Active Substance: CARBOPLATIN
     Indication: NON-SMALL CELL LUNG CANCER
     Dosage: 6.0 AUC
     Route: 042
     Dates: start: 20171128, end: 20171128
  3. MEDI4736 [Suspect]
     Active Substance: DURVALUMAB
     Indication: NON-SMALL CELL LUNG CANCER
     Route: 042
     Dates: start: 20171219, end: 20171219
  4. CHLORPHENIRAMINE. [Concomitant]
     Active Substance: CHLORPHENIRAMINE
     Indication: PROPHYLAXIS
     Dosage: 5.0MG ONCE/SINGLE ADMINISTRATION
     Route: 042
     Dates: start: 20171219, end: 20171219
  5. METOCLOPRAMIDE. [Concomitant]
     Active Substance: METOCLOPRAMIDE
     Indication: PROPHYLAXIS
     Dosage: 9.0MG ONCE/SINGLE ADMINISTRATION
     Route: 042
     Dates: start: 20171219, end: 20171219
  6. ASPIRIN. [Concomitant]
     Active Substance: ASPIRIN
     Indication: MYOCARDIAL ISCHAEMIA
     Route: 048
     Dates: start: 20170907
  7. FENTANYL. [Concomitant]
     Active Substance: FENTANYL
     Indication: PAIN
     Dosage: 12 MG Q3D
     Dates: start: 20171023
  8. RANITIDINE. [Concomitant]
     Active Substance: RANITIDINE
     Indication: ULCER
     Route: 048
     Dates: start: 20171116, end: 20171217
  9. HYDROXOCOBALAMIN [Concomitant]
     Active Substance: HYDROXOCOBALAMIN
     Indication: PROPHYLAXIS
     Dosage: 1.0MG ONCE/SINGLE ADMINISTRATION
     Route: 030
     Dates: start: 20171219, end: 20171219
  10. PEMETREXED. [Suspect]
     Active Substance: PEMETREXED
     Indication: NON-SMALL CELL LUNG CANCER
     Dosage: 500.0MG/M2 ONCE/SINGLE ADMINISTRATION
     Route: 042
     Dates: start: 20171107, end: 20171107
  11. PROCHLORPERAZINE. [Concomitant]
     Active Substance: PROCHLORPERAZINE
     Indication: PROPHYLAXIS
     Dosage: 5.0MG ONCE/SINGLE ADMINISTRATION
     Route: 042
     Dates: start: 20171219, end: 20171219
  12. BENZONATATE. [Concomitant]
     Active Substance: BENZONATATE
     Indication: COUGH
     Route: 048
     Dates: start: 20171220, end: 20171226
  13. MEDI4736 [Suspect]
     Active Substance: DURVALUMAB
     Indication: NON-SMALL CELL LUNG CANCER
     Route: 042
     Dates: start: 20171128, end: 20171128
  14. AMBROXOL [Concomitant]
     Active Substance: AMBROXOL
     Indication: COUGH
     Route: 048
     Dates: start: 20171109, end: 20171217
  15. PEMETREXED. [Suspect]
     Active Substance: PEMETREXED
     Indication: NON-SMALL CELL LUNG CANCER
     Dosage: 500.0MG/M2 ONCE/SINGLE ADMINISTRATION
     Route: 042
     Dates: start: 20180111, end: 20180111
  16. CARBOPLATIN. [Suspect]
     Active Substance: CARBOPLATIN
     Indication: NON-SMALL CELL LUNG CANCER
     Dosage: 6.0 AUC
     Route: 042
     Dates: start: 20171017, end: 20171017
  17. CARBOPLATIN. [Suspect]
     Active Substance: CARBOPLATIN
     Indication: NON-SMALL CELL LUNG CANCER
     Dosage: 6.0 AUC
     Route: 042
     Dates: start: 20171107, end: 20171107
  18. MEDI4736 [Suspect]
     Active Substance: DURVALUMAB
     Indication: NON-SMALL CELL LUNG CANCER
     Route: 042
     Dates: start: 20171017, end: 20171017
  19. MEDI4736 [Suspect]
     Active Substance: DURVALUMAB
     Indication: NON-SMALL CELL LUNG CANCER
     Route: 042
     Dates: start: 20171107, end: 20171107
  20. MEDI4736 [Suspect]
     Active Substance: DURVALUMAB
     Indication: NON-SMALL CELL LUNG CANCER
     Route: 042
     Dates: start: 20180111, end: 20180111
  21. ISOSORBIDE DINITRATE. [Concomitant]
     Active Substance: ISOSORBIDE DINITRATE
     Indication: MYOCARDIAL ISCHAEMIA
     Route: 048
     Dates: start: 20170907
  22. PEMETREXED. [Suspect]
     Active Substance: PEMETREXED
     Indication: NON-SMALL CELL LUNG CANCER
     Dosage: 500.0MG/M2 ONCE/SINGLE ADMINISTRATION
     Route: 042
     Dates: start: 20171128, end: 20171128
  23. PEMETREXED. [Suspect]
     Active Substance: PEMETREXED
     Indication: NON-SMALL CELL LUNG CANCER
     Dosage: 500.0MG/M2 ONCE/SINGLE ADMINISTRATION
     Route: 042
     Dates: start: 20171219, end: 20171219
  24. CARBOPLATIN. [Suspect]
     Active Substance: CARBOPLATIN
     Indication: NON-SMALL CELL LUNG CANCER
     Dosage: 6.0 AUC
     Route: 042
     Dates: start: 20171219, end: 20171219
  25. DEXAMETHASONE. [Concomitant]
     Active Substance: DEXAMETHASONE
     Indication: PROPHYLAXIS
     Dosage: 10.0MG ONCE/SINGLE ADMINISTRATION
     Route: 042
     Dates: start: 20171219, end: 20171219
  26. RANITIDINE. [Concomitant]
     Active Substance: RANITIDINE
     Indication: ULCER
     Route: 048
     Dates: start: 20171221, end: 20171226

REACTIONS (1)
  - Abdominal discomfort [Recovered/Resolved]

NARRATIVE: CASE EVENT DATE: 20171222
